FAERS Safety Report 9224778 (Version 2)
Quarter: 2013Q4

REPORT INFORMATION
  Report Type: Spontaneous
  Country: US (occurrence: None)
  Receive Date: 20130409
  Receipt Date: 20131105
  Transmission Date: 20140711
  Serious: Yes (Other)
  Sender: FDA-Public Use
  Company Number: 2013AP004121

PATIENT
  Age: 61 Year
  Sex: Female

DRUGS (3)
  1. OFLOXACIN OTIC SOLUTION 0.3% [Suspect]
     Indication: EAR DISORDER
     Dates: start: 20130307, end: 20130307
  2. CIPROFLOXACIN [Concomitant]
  3. OFLOXACIN [Concomitant]

REACTIONS (16)
  - Drug hypersensitivity [None]
  - Heart rate increased [None]
  - Muscle disorder [None]
  - Bone disorder [None]
  - Tendon disorder [None]
  - Gastric disorder [None]
  - Memory impairment [None]
  - Speech disorder [None]
  - Neuropathy peripheral [None]
  - Vision blurred [None]
  - Depressed level of consciousness [None]
  - Panic attack [None]
  - Drug interaction [None]
  - Arthralgia [None]
  - Headache [None]
  - Feeling abnormal [None]
